FAERS Safety Report 9082045 (Version 1)
Quarter: 2013Q1

REPORT INFORMATION
  Report Type: Spontaneous
  Country: CA (occurrence: CA)
  Receive Date: 20130130
  Receipt Date: 20130130
  Transmission Date: 20140127
  Serious: Yes (Hospitalization)
  Sender: FDA-Public Use
  Company Number: CA-ELI_LILLY_AND_COMPANY-CA201301008069

PATIENT
  Age: 88 Year
  Sex: Female

DRUGS (11)
  1. FORTEO [Suspect]
     Indication: OSTEOPOROSIS
     Dosage: 20MCG, DAILY
     Route: 058
     Dates: start: 20121026, end: 20130111
  2. FORTEO [Suspect]
     Dosage: 20MCG, DAILY
     Dates: start: 20130120
  3. CARBOCAL [Concomitant]
  4. ENALAPRIL [Concomitant]
  5. A.S.A. [Concomitant]
     Dosage: 80MG
  6. NORVASC [Concomitant]
  7. SYNTHROID [Concomitant]
  8. QUININE [Concomitant]
  9. PANTOLOC                           /01263204/ [Concomitant]
  10. LIPITOR [Concomitant]
  11. SULFASALAZINE [Concomitant]

REACTIONS (2)
  - Pleural effusion [Not Recovered/Not Resolved]
  - Medication error [Unknown]
